FAERS Safety Report 5147896-6 (Version None)
Quarter: 2006Q4

REPORT INFORMATION
  Report Type: 
  Country: None (occurrence: None)
  Receive Date: 20061106
  Receipt Date: 20061019
  Transmission Date: 20070319
  Serious: Yes (Hospitalization)
  Sender: FDA-Public Use
  Company Number: TRP_0848_2006

PATIENT
  Age: 48 Year
  Sex: Female
  Weight: 124.2856 kg

DRUGS (13)
  1. RIBASPHERE [Suspect]
     Indication: HEPATITIS C
     Dosage: VAR BID PO
     Route: 048
     Dates: start: 20060622, end: 20060703
  2. RIBASPHERE [Suspect]
     Indication: HEPATITIS C
     Dosage: VAR BID PO
     Route: 048
     Dates: start: 20060807
  3. PEG-INTRON [Suspect]
     Indication: HEPATITIS C
     Dosage: 0.5 MG QWK SC
     Route: 058
     Dates: start: 20060622, end: 20060703
  4. PEG-INTRON [Suspect]
     Indication: HEPATITIS C
     Dosage: 0.5 MG QWK SC
     Route: 058
     Dates: start: 20060807
  5. GLUCOTROL XL EXTENDED RELEASE [Concomitant]
  6. LISINOPRIL [Concomitant]
  7. LORCET-HD [Concomitant]
  8. METFORMIN HYDROCHLORIDE [Concomitant]
  9. NASONEX [Concomitant]
  10. NORVASC [Concomitant]
  11. NOVOLOG [Concomitant]
  12. SPIRONOLACTONE W/ HYDROCHLOROTHIAZIDE [Concomitant]
  13. ZOLOFT [Concomitant]

REACTIONS (1)
  - CHOLELITHIASIS [None]
